FAERS Safety Report 11692915 (Version 1)
Quarter: 2015Q4

REPORT INFORMATION
  Report Type: Report from Study
  Country: US (occurrence: US)
  Receive Date: 20151103
  Receipt Date: 20151103
  Transmission Date: 20160304
  Serious: Yes (Hospitalization)
  Sender: FDA-Public Use
  Company Number: US-BIOGENIDEC-2015BI143302

PATIENT
  Age: 68 Year
  Sex: Female

DRUGS (1)
  1. TYSABRI [Suspect]
     Active Substance: NATALIZUMAB
     Indication: MULTIPLE SCLEROSIS
     Route: 042
     Dates: start: 20140725

REACTIONS (4)
  - Acute kidney injury [Unknown]
  - Meningitis [Recovered/Resolved with Sequelae]
  - Fear [Unknown]
  - Arterial disorder [Unknown]

NARRATIVE: CASE EVENT DATE: 2015
